FAERS Safety Report 6407537-4 (Version None)
Quarter: 2009Q4

REPORT INFORMATION
  Report Type: 
  Country: None (occurrence: None)
  Receive Date: 20091020
  Receipt Date: 20091012
  Transmission Date: 20100525
  Serious: Yes (Other)
  Sender: FDA-Public Use
  Company Number: DE-TEVA-209413ISR

PATIENT
  Sex: Male
  Weight: 48.7 kg

DRUGS (2)
  1. METHOTREXATE [Suspect]
     Route: 042
     Dates: start: 20090827, end: 20090829
  2. METHOTREXATE [Suspect]
     Route: 042
     Dates: start: 20090909, end: 20090912

REACTIONS (2)
  - DRUG CLEARANCE INCREASED [None]
  - DRUG LEVEL INCREASED [None]
